FAERS Safety Report 11235502 (Version 1)
Quarter: 2015Q3

REPORT INFORMATION
  Report Type: Spontaneous
  Country: HU (occurrence: HU)
  Receive Date: 20150702
  Receipt Date: 20150702
  Transmission Date: 20151125
  Serious: Yes (Other)
  Sender: FDA-Public Use
  Company Number: HU-JNJFOC-20150619643

PATIENT

DRUGS (1)
  1. IMBRUVICA [Suspect]
     Active Substance: IBRUTINIB
     Indication: CHRONIC LYMPHOCYTIC LEUKAEMIA

REACTIONS (9)
  - Atrial fibrillation [Unknown]
  - Neutropenia [Unknown]
  - Diarrhoea [Unknown]
  - Arthralgia [Unknown]
  - Lymphocytosis [Unknown]
  - Haematuria [Unknown]
  - Haemolysis [Unknown]
  - Subcutaneous haematoma [Unknown]
  - Myalgia [Unknown]
